FAERS Safety Report 21604718 (Version 3)
Quarter: 2023Q1

REPORT INFORMATION
  Report Type: Report from Study
  Country: BR (occurrence: BR)
  Receive Date: 20221116
  Receipt Date: 20230126
  Transmission Date: 20230417
  Serious: Yes (Hospitalization)
  Sender: FDA-Public Use
  Company Number: BR-BIOGEN-2022BI01168420

PATIENT
  Sex: Female
  Weight: 90 kg

DRUGS (12)
  1. TYSABRI [Suspect]
     Active Substance: NATALIZUMAB
     Indication: Multiple sclerosis
     Dosage: APPROXIMATELY 1 YEAR AND 7 MONTHS.
     Route: 050
     Dates: start: 202006
  2. TYSABRI [Suspect]
     Active Substance: NATALIZUMAB
     Route: 050
     Dates: start: 20210120
  3. TYSABRI [Suspect]
     Active Substance: NATALIZUMAB
     Route: 050
     Dates: start: 202108
  4. TYSABRI [Suspect]
     Active Substance: NATALIZUMAB
     Route: 050
  5. GABAPENTIN [Concomitant]
     Active Substance: GABAPENTIN
     Indication: Pain
     Route: 050
     Dates: start: 2017
  6. LEVOID (SODIUM LEVOTHYROXINE) [Concomitant]
     Indication: Hypothyroidism
     Route: 050
     Dates: start: 2007
  7. LEVOID (SODIUM LEVOTHYROXINE) [Concomitant]
     Route: 050
     Dates: start: 2017
  8. DIVALPROEX SODIUM [Concomitant]
     Active Substance: DIVALPROEX SODIUM
     Indication: Behaviour disorder
     Route: 050
     Dates: start: 201801
  9. VITAMIN D [Concomitant]
     Active Substance: VITAMIN D NOS
     Indication: Multiple sclerosis
     Route: 050
     Dates: start: 2017
  10. AMPLICTIL [Concomitant]
     Active Substance: CHLORPROMAZINE HYDROCHLORIDE
     Indication: Insomnia
     Route: 050
     Dates: start: 2017
  11. VENLAFAXINE [Concomitant]
     Active Substance: VENLAFAXINE HYDROCHLORIDE
     Indication: Headache
     Route: 050
     Dates: start: 2020
  12. NEOZINE ORAL [Concomitant]
     Indication: Insomnia
     Route: 050
     Dates: start: 202201

REACTIONS (3)
  - Epilepsy [Not Recovered/Not Resolved]
  - Cervix disorder [Not Recovered/Not Resolved]
  - Prescribed underdose [Not Recovered/Not Resolved]

NARRATIVE: CASE EVENT DATE: 20210101
